FAERS Safety Report 5909128-8 (Version None)
Quarter: 2008Q4

REPORT INFORMATION
  Report Type: 
  Country: None (occurrence: None)
  Receive Date: 20081006
  Receipt Date: 20080930
  Transmission Date: 20090506
  Serious: Yes (Life-Threatening, Hospitalization)
  Sender: FDA-Public Use
  Company Number: DE-ABBOTT-08P-062-0479405-00

PATIENT
  Sex: Male
  Weight: 88 kg

DRUGS (8)
  1. HUMIRA [Suspect]
     Indication: RHEUMATOID ARTHRITIS
     Route: 058
     Dates: start: 20080630, end: 20080720
  2. RITUXIMAB [Concomitant]
     Indication: RHEUMATOID ARTHRITIS
  3. ANALGETIC MEDICATION [Concomitant]
     Indication: RHEUMATOID ARTHRITIS
  4. NSAID'S [Concomitant]
     Indication: RHEUMATOID ARTHRITIS
  5. GLUCOCORTICOIDS [Concomitant]
     Indication: RHEUMATOID ARTHRITIS
  6. SULFASALAZINE [Concomitant]
     Indication: RHEUMATOID ARTHRITIS
  7. METHOTREXATE SODIUM [Concomitant]
     Indication: RHEUMATOID ARTHRITIS
  8. COXIBES [Concomitant]
     Indication: RHEUMATOID ARTHRITIS

REACTIONS (1)
  - HEPATITIS TOXIC [None]
